FAERS Safety Report 4353421-X (Version None)
Quarter: 2004Q2

REPORT INFORMATION
  Report Type: 
  Country: None (occurrence: None)
  Receive Date: 20040505
  Receipt Date: 20040505
  Transmission Date: 20050107
  Serious: Yes (Life-Threatening)
  Sender: FDA-Public Use
  Company Number: None

PATIENT
  Age: 63 Year
  Sex: Male

DRUGS (4)
  1. THYMOGLOBULIN [Suspect]
     Indication: TRANSPLANT REJECTION
     Dosage: 140 MG IV OVER 6 HOURS
     Route: 042
     Dates: start: 20040124
  2. CEFUROXIME [Concomitant]
  3. PROTONIX [Concomitant]
  4. CELLCEPT [Concomitant]

REACTIONS (1)
  - ANAPHYLACTIC SHOCK [None]
